FAERS Safety Report 17210631 (Version 1)
Quarter: 2019Q4

REPORT INFORMATION
  Report Type: Spontaneous
  Country: IT (occurrence: IT)
  Receive Date: 20191227
  Receipt Date: 20191227
  Transmission Date: 20200122
  Serious: Yes (Life-Threatening, Other)
  Sender: FDA-Public Use
  Company Number: IT-BRACCO-2019IT06778

PATIENT
  Age: 80 Year
  Sex: Female

DRUGS (1)
  1. SONOVUE [Suspect]
     Active Substance: SULFUR HEXAFLUORIDE
     Indication: DIAGNOSTIC PROCEDURE
     Dosage: UNK, SINGLE
     Route: 042
     Dates: start: 20191212, end: 20191212

REACTIONS (3)
  - Prinzmetal angina [Not Recovered/Not Resolved]
  - Bradycardia [Not Recovered/Not Resolved]
  - Atrioventricular dissociation [Not Recovered/Not Resolved]

NARRATIVE: CASE EVENT DATE: 20191212
